FAERS Safety Report 25760630 (Version 2)
Quarter: 2025Q4

REPORT INFORMATION
  Report Type: Spontaneous
  Country: EU (occurrence: EU)
  Receive Date: 20250904
  Receipt Date: 20251024
  Transmission Date: 20260118
  Serious: Yes (Hospitalization)
  Sender: AVERITAS
  Company Number: EU-GRUNENTHAL-2025-113704

PATIENT
  Age: 36 Year
  Sex: Female
  Weight: 46 kg

DRUGS (11)
  1. QUTENZA [Suspect]
     Active Substance: CAPSAICIN
     Indication: Small fibre neuropathy
     Dosage: 1 DOSAGE FORM, ONCE
     Route: 003
     Dates: start: 20250814, end: 20250814
  2. QUTENZA [Suspect]
     Active Substance: CAPSAICIN
     Indication: Erythromelalgia
  3. QUTENZA [Suspect]
     Active Substance: CAPSAICIN
     Indication: Carpal tunnel syndrome
  4. QUTENZA [Suspect]
     Active Substance: CAPSAICIN
     Indication: Extrapyramidal disorder
  5. QUTENZA [Suspect]
     Active Substance: CAPSAICIN
     Indication: Spinal disorder
  6. TRAMADOL HYDROCHLORIDE [Suspect]
     Active Substance: TRAMADOL HYDROCHLORIDE
     Indication: Product used for unknown indication
     Dosage: UNK
     Route: 065
  7. LYRICA [Concomitant]
     Active Substance: PREGABALIN
     Dosage: UNK
     Route: 065
  8. GABAPENTIN [Concomitant]
     Active Substance: GABAPENTIN
     Dosage: UNK
     Route: 065
  9. AMITRIPTYLINE HYDROCHLORIDE [Concomitant]
     Active Substance: AMITRIPTYLINE HYDROCHLORIDE
     Dosage: UNK
     Route: 065
  10. LEVOCARNITINE [Concomitant]
     Active Substance: LEVOCARNITINE
     Dosage: UNK
     Route: 065
  11. ACUPAN [Concomitant]
     Active Substance: NEFOPAM HYDROCHLORIDE
     Indication: Headache
     Dosage: UNK
     Route: 065
     Dates: start: 20250814

REACTIONS (5)
  - Application site discomfort [Not Recovered/Not Resolved]
  - Application site warmth [Not Recovered/Not Resolved]
  - Application site pain [Recovered/Resolved]
  - Application site pain [Not Recovered/Not Resolved]
  - Drug hypersensitivity [Unknown]

NARRATIVE: CASE EVENT DATE: 20250814
